FAERS Safety Report 8794313 (Version 1)
Quarter: 2012Q4

REPORT INFORMATION
  Report Type: 
  Country: US (occurrence: US)
  Receive Date: 20120917
  Receipt Date: 20120917
  Transmission Date: 20130627
  Serious: Yes (Other)
  Sender: FDA-Public Use
  Company Number: PHEH2012US017844

PATIENT
  Sex: Female

DRUGS (6)
  1. DIOVAN HCT [Suspect]
     Indication: BLOOD PRESSURE ABNORMAL
     Dosage: 1 DF (160 mg vals and 12.5 mg HCTZ), daily
     Route: 048
  2. METOPROLOL [Concomitant]
  3. VITAMIN D [Concomitant]
  4. PROAIR [Concomitant]
  5. OMEGA 3 [Concomitant]
  6. BIOTIN [Concomitant]

REACTIONS (3)
  - Deafness [Unknown]
  - Sensory loss [Unknown]
  - Deafness unilateral [None]
